FAERS Safety Report 10092683 (Version 1)
Quarter: 2014Q2

REPORT INFORMATION
  Report Type: Spontaneous
  Country: US (occurrence: US)
  Receive Date: 20140421
  Receipt Date: 20140421
  Transmission Date: 20141212
  Serious: No
  Sender: FDA-Public Use
  Company Number: US-SANOFI-AVENTIS-2013SA062773

PATIENT
  Sex: Female

DRUGS (1)
  1. ALLEGRA [Suspect]
     Indication: PRURITUS
     Dosage: SHE HAS BEEN ON THE PRODUCT FOR ABOUT THREE WEEKS
     Route: 048

REACTIONS (2)
  - Nasal dryness [Unknown]
  - Urine output decreased [Unknown]
